FAERS Safety Report 14797345 (Version 1)
Quarter: 2018Q2

REPORT INFORMATION
  Report Type: Spontaneous
  Country: FR (occurrence: FR)
  Receive Date: 20180424
  Receipt Date: 20180424
  Transmission Date: 20180711
  Serious: Yes (Other)
  Sender: FDA-Public Use
  Company Number: FR-MERCK KGAA-2046341

PATIENT

DRUGS (5)
  1. NOVOTHYROX [Suspect]
     Active Substance: LEVOTHYROXINE SODIUM
     Route: 048
     Dates: start: 20090901, end: 20180306
  2. PROGESTAN [Concomitant]
     Active Substance: PROGESTERONE
     Route: 065
     Dates: start: 201705
  3. NOVOTHYROX [Suspect]
     Active Substance: LEVOTHYROXINE SODIUM
     Indication: POST PROCEDURAL HYPOTHYROIDISM
     Route: 048
     Dates: start: 20090901, end: 20180306
  4. UVEDOSE [Concomitant]
     Active Substance: CHOLECALCIFEROL
     Route: 065
  5. ESTRAPATCH [Suspect]
     Active Substance: ESTRADIOL
     Route: 062
     Dates: start: 20170501, end: 20180305

REACTIONS (19)
  - Asthenia [Unknown]
  - Hypoglycaemia [Unknown]
  - Memory impairment [Unknown]
  - Burnout syndrome [Unknown]
  - Feeling cold [Unknown]
  - Weight decreased [Unknown]
  - Drug interaction [Unknown]
  - Mastocytosis [Unknown]
  - Hypothyroidism [Not Recovered/Not Resolved]
  - Fall [Recovered/Resolved]
  - Abdominal pain [Unknown]
  - Nausea [Unknown]
  - Rib fracture [Unknown]
  - Dizziness [Unknown]
  - Myalgia [Unknown]
  - Flatulence [Unknown]
  - Constipation [Unknown]
  - Inappropriate schedule of drug administration [Unknown]
  - Off label use [Unknown]

NARRATIVE: CASE EVENT DATE: 2017
